FAERS Safety Report 6108944-X (Version None)
Quarter: 2009Q1

REPORT INFORMATION
  Report Type: 
  Country: None (occurrence: None)
  Receive Date: 20090306
  Receipt Date: 20090224
  Transmission Date: 20090719
  Serious: Yes (Death, Congenital Anomaly)
  Sender: FDA-Public Use
  Company Number: 2009S1000058

PATIENT

DRUGS (1)
  1. SORIATANE [Suspect]
     Dosage: TRPL
     Route: 064

REACTIONS (5)
  - ABORTION INDUCED [None]
  - CONJOINED TWINS [None]
  - DRUG EXPOSURE BEFORE PREGNANCY [None]
  - PREGNANCY [None]
  - WRONG TECHNIQUE IN DRUG USAGE PROCESS [None]
